FAERS Safety Report 13693828 (Version 1)
Quarter: 2017Q2

REPORT INFORMATION
  Report Type: Spontaneous
  Country: FR (occurrence: FR)
  Receive Date: 20170627
  Receipt Date: 20170627
  Transmission Date: 20170830
  Serious: Yes (Disabling)
  Sender: FDA-Public Use
  Company Number: FR-BAYER-2017-121000

PATIENT
  Age: 43 Year
  Sex: Female

DRUGS (1)
  1. MIRENA [Suspect]
     Active Substance: LEVONORGESTREL
     Indication: CONTRACEPTION
     Dosage: 20 MCG/24HR, CONT
     Route: 015
     Dates: start: 20150901

REACTIONS (12)
  - Fatigue [None]
  - Amnesia [Unknown]
  - Mood swings [Unknown]
  - Headache [Unknown]
  - Cervicobrachial syndrome [Unknown]
  - Asthenia [None]
  - Burnout syndrome [Unknown]
  - Vertigo [Unknown]
  - Depression [Unknown]
  - Anxiety [Unknown]
  - Breast pain [Unknown]
  - Hypersensitivity [Unknown]
